FAERS Safety Report 15277452 (Version 2)
Quarter: 2018Q4

REPORT INFORMATION
  Report Type: Spontaneous
  Country: US (occurrence: US)
  Receive Date: 20180814
  Receipt Date: 20181010
  Transmission Date: 20190204
  Serious: Yes (Other)
  Sender: FDA-Public Use
  Company Number: US-ASTRAZENECA-2018SF01573

PATIENT
  Age: 65 Year
  Sex: Female
  Weight: 87.1 kg

DRUGS (1)
  1. BYDUREON [Suspect]
     Active Substance: EXENATIDE
     Indication: DIABETES MELLITUS
     Route: 058

REACTIONS (6)
  - Device malfunction [Unknown]
  - Joint injury [Not Recovered/Not Resolved]
  - Product packaging quantity issue [Unknown]
  - Wrong technique in device usage process [Unknown]
  - Fall [Unknown]
  - Device leakage [Unknown]

NARRATIVE: CASE EVENT DATE: 2017
